FAERS Safety Report 8430284-4 (Version None)
Quarter: 2012Q2

REPORT INFORMATION
  Report Type: 
  Country: None (occurrence: None)
  Receive Date: 20120612
  Receipt Date: 20120531
  Transmission Date: 20120825
  Serious: Yes (Death, Hospitalization)
  Sender: FDA-Public Use
  Company Number: FI-ELI_LILLY_AND_COMPANY-FI201204008971

PATIENT
  Age: 30 Year
  Sex: Male

DRUGS (9)
  1. ZYPREXA [Suspect]
     Dosage: 1 DF, UNKNOWN
     Route: 048
     Dates: start: 20111109, end: 20111114
  2. ZYPREXA [Suspect]
     Dosage: 5 MG, PRN
     Route: 048
     Dates: start: 20111115
  3. LAMOTRIGINE [Concomitant]
     Dosage: UNK UNK, QD
     Route: 065
     Dates: start: 20100921, end: 20111101
  4. OLANZAPINE [Suspect]
     Dosage: 300 MG, 2/M
     Route: 030
     Dates: start: 20111115
  5. LAMOTRIGINE [Concomitant]
     Dosage: 200 MG, QD
     Route: 065
     Dates: start: 20120101
  6. RISPERIDONE [Concomitant]
     Indication: PSYCHOTIC DISORDER
     Dosage: 1 TABLET 1-2 TIMES DAILY
     Dates: start: 20120403
  7. LAMOTRIGINE [Concomitant]
     Dosage: 100 MG, QD
     Dates: end: 20120101
  8. CLONAZEPAM [Concomitant]
     Indication: PSYCHOTIC DISORDER
     Dosage: 1 TABLET 1-2 TIMES DAILY
     Route: 065
     Dates: start: 20120403
  9. ZYPREXA [Suspect]
     Indication: PSYCHOTIC DISORDER
     Dosage: 1 UNK, QD
     Route: 048
     Dates: start: 20090930, end: 20111101

REACTIONS (5)
  - INTENTIONAL DRUG MISUSE [None]
  - WEIGHT INCREASED [None]
  - COMPLETED SUICIDE [None]
  - HOSPITALISATION [None]
  - FEELING ABNORMAL [None]
